FAERS Safety Report 12642251 (Version 1)
Quarter: 2016Q3

REPORT INFORMATION
  Report Type: Spontaneous
  Country: US (occurrence: US)
  Receive Date: 20160810
  Receipt Date: 20160810
  Transmission Date: 20161109
  Serious: No
  Sender: FDA-Public Use
  Company Number: US-PFIZER INC-2016370690

PATIENT
  Sex: Female

DRUGS (2)
  1. ADVIL [Suspect]
     Active Substance: IBUPROFEN
     Dosage: 4 DF, 2 ADVIL IN THE MORNING AND 2 ADVIL AT NIGHT
  2. IBUPROFEN. [Suspect]
     Active Substance: IBUPROFEN
     Dosage: ONE EXTRA STRENGTH IBUPROFEN IN BETWEEN

REACTIONS (1)
  - Visual acuity reduced [Unknown]
